FAERS Safety Report 5122646-8 (Version None)
Quarter: 2006Q4

REPORT INFORMATION
  Report Type: 
  Country: None (occurrence: None)
  Receive Date: 20061005
  Receipt Date: 20061005
  Transmission Date: 20070319
  Serious: Yes (Death, Hospitalization)
  Sender: FDA-Public Use
  Company Number: None

PATIENT
  Age: 82 Year
  Sex: Male
  Weight: 87 kg

DRUGS (14)
  1. WARFARIN SODIUM [Suspect]
     Indication: ATRIAL FIBRILLATION
     Dosage: 5MG + 2.5 MG TH+S/M/TU/W/F/S PO
     Route: 048
     Dates: start: 19991001, end: 20060707
  2. ISOSORBIDE MONONITRATE [Concomitant]
  3. LISINOPRIL [Concomitant]
  4. WARFARIN SODIUM [Concomitant]
  5. METOPROLOL TARTRATE [Concomitant]
  6. SIMVASTATIN [Concomitant]
  7. GLIPZIDE [Concomitant]
  8. MECLIZINE [Concomitant]
  9. TOPROLOL XL [Concomitant]
  10. ESCITALPRAM [Concomitant]
  11. FLOMAX [Concomitant]
  12. SPIRONOLACTONE [Concomitant]
  13. PREDNISONE TAB [Concomitant]
  14. FUROSEMIDE [Concomitant]

REACTIONS (2)
  - GASTRIC HAEMORRHAGE [None]
  - ILL-DEFINED DISORDER [None]
